FAERS Safety Report 9224988 (Version 1)
Quarter: 2013Q2

REPORT INFORMATION
  Report Type: Report from Study
  Country: US (occurrence: US)
  Receive Date: 20130411
  Receipt Date: 20130411
  Transmission Date: 20140414
  Serious: Yes (Other)
  Sender: FDA-Public Use
  Company Number: US-JNJFOC-20130401097

PATIENT
  Sex: Female
  Weight: 117.94 kg

DRUGS (16)
  1. STELARA [Suspect]
     Indication: PSORIASIS
     Route: 058
     Dates: start: 2011, end: 201302
  2. STELARA [Suspect]
     Indication: PSORIASIS
     Route: 058
     Dates: start: 200909, end: 2011
  3. METHOTREXATE [Suspect]
     Indication: ARTHRALGIA
     Route: 065
     Dates: start: 2011, end: 2011
  4. FOLIC ACID [Suspect]
     Indication: VOMITING
     Route: 065
     Dates: start: 2011, end: 2011
  5. FOLIC ACID [Suspect]
     Indication: NAUSEA
     Route: 065
     Dates: start: 2011, end: 2011
  6. VITAMIN B 12 [Suspect]
     Indication: VOMITING
     Route: 065
     Dates: start: 2011, end: 2011
  7. VITAMIN B 12 [Suspect]
     Indication: NAUSEA
     Route: 065
     Dates: start: 2011, end: 2011
  8. HUMIRA [Concomitant]
     Indication: PSORIASIS
     Route: 065
     Dates: start: 201302
  9. MESTINON [Concomitant]
     Indication: MYASTHENIA GRAVIS
     Route: 048
     Dates: start: 1976
  10. ATENOLOL [Concomitant]
     Indication: VENTRICULAR EXTRASYSTOLES
     Route: 048
     Dates: start: 2003
  11. LEVOTHYROXINE [Concomitant]
     Indication: HYPOTHYROIDISM
     Route: 048
     Dates: start: 2003, end: 2010
  12. ARMOUR THYROID [Concomitant]
     Indication: HYPOTHYROIDISM
     Route: 048
     Dates: start: 2010
  13. MELOXICAM [Concomitant]
     Indication: ARTHRALGIA
     Route: 048
     Dates: start: 2011, end: 201301
  14. VOLTAREN [Concomitant]
     Indication: ARTHRALGIA
     Route: 048
     Dates: start: 2011, end: 201212
  15. FISH OIL [Concomitant]
     Indication: BLOOD CHOLESTEROL
     Route: 048
     Dates: start: 2008
  16. NIACIN [Concomitant]
     Indication: BLOOD TRIGLYCERIDES
     Route: 048
     Dates: start: 2008

REACTIONS (16)
  - Parathyroid disorder [Recovered/Resolved]
  - Thyroid disorder [Recovered/Resolved]
  - Psoriatic arthropathy [Not Recovered/Not Resolved]
  - Joint injury [Not Recovered/Not Resolved]
  - Arthralgia [Not Recovered/Not Resolved]
  - Psoriasis [Recovered/Resolved]
  - Blood calcium decreased [Recovered/Resolved]
  - Blood calcium increased [Recovered/Resolved]
  - Arthralgia [Not Recovered/Not Resolved]
  - Drug intolerance [Not Recovered/Not Resolved]
  - Nausea [Recovered/Resolved]
  - Vomiting [Recovered/Resolved]
  - Malaise [Recovered/Resolved]
  - Vitamin D deficiency [Recovered/Resolved]
  - Vitamin B12 deficiency [Recovered/Resolved]
  - Drug ineffective [Not Recovered/Not Resolved]
